FAERS Safety Report 6778221 (Version 1)
Quarter: 2020Q3

REPORT INFORMATION
  Report Type: Report from Study
  Country: US (occurrence: US)
  Receive Date: 20081003
  Receipt Date: 20081003
  Transmission Date: 20201105
  Serious: Yes (Death, Hospitalization)
  Sender: FDA-Public Use
  Company Number: US-ROCHE-587608

PATIENT
  Age: 69 Year
  Sex: Male
  Weight: 97.5 kg

DRUGS (2)
  1. IBANDRONIC ACID. [Suspect]
     Active Substance: IBANDRONIC ACID
     Indication: OSTEOPOROSIS
     Route: 048
  2. UNSPECIFIED INGREDIENT [Concomitant]
     Active Substance: UNSPECIFIED INGREDIENT

REACTIONS (2)
  - Staphylococcal infection [Fatal]
  - Arthropod bite [Fatal]

NARRATIVE: CASE EVENT DATE: 20071001
